FAERS Safety Report 6303951-6 (Version None)
Quarter: 2009Q3

REPORT INFORMATION
  Report Type: 
  Country: None (occurrence: None)
  Receive Date: 20090805
  Receipt Date: 20090724
  Transmission Date: 20100115
  Serious: Yes (Hospitalization)
  Sender: FDA-Public Use
  Company Number: HPEU-2009-003

PATIENT
  Sex: Male

DRUGS (2)
  1. PYLERA [Suspect]
     Indication: HELICOBACTER INFECTION
     Dosage: 12 CAPSULES OF PYLERA AND 2 TABLETS OF OMEPRAZOLE ORAL
     Route: 048
     Dates: start: 20081016, end: 20081025
  2. OMEPRAZOLE [Suspect]

REACTIONS (3)
  - DRUG HYPERSENSITIVITY [None]
  - ECZEMA [None]
  - URTICARIA [None]
